FAERS Safety Report 13591799 (Version 1)
Quarter: 2017Q2

REPORT INFORMATION
  Report Type: Spontaneous
  Country: US (occurrence: US)
  Receive Date: 20170529
  Receipt Date: 20170529
  Transmission Date: 20170830
  Serious: Yes (Other)
  Sender: FDA-Public Use
  Company Number: US-APOTEX-2017AP012436

PATIENT
  Age: 39 Year
  Sex: Female

DRUGS (6)
  1. TOPIRAMATE. [Suspect]
     Active Substance: TOPIRAMATE
     Indication: MIGRAINE
     Dosage: 25 MG, BID
     Route: 065
  2. CALCIUM CARBONATE. [Suspect]
     Active Substance: CALCIUM CARBONATE
     Indication: PRODUCT USED FOR UNKNOWN INDICATION
     Dosage: 1000 MG, DAILY
     Route: 048
  3. MECLIZINE [Suspect]
     Active Substance: MECLIZINE HYDROCHLORIDE
     Indication: VOMITING
  4. TOPIRAMATE. [Suspect]
     Active Substance: TOPIRAMATE
     Dosage: 50 MG, DAILY
     Route: 065
  5. TOPIRAMATE. [Suspect]
     Active Substance: TOPIRAMATE
     Dosage: 100 MG, BID
     Route: 065
  6. MECLIZINE [Suspect]
     Active Substance: MECLIZINE HYDROCHLORIDE
     Indication: NAUSEA
     Dosage: 25 MG, PRN, DAILY
     Route: 065

REACTIONS (10)
  - Salivary gland calculus [Recovered/Resolved]
  - Sialoadenitis [Recovered/Resolved]
  - Urine abnormality [Recovered/Resolved]
  - Paraesthesia [Unknown]
  - Disturbance in attention [Unknown]
  - Weight decreased [Unknown]
  - Gastrooesophageal reflux disease [Recovered/Resolved]
  - Memory impairment [Recovered/Resolved]
  - Decreased appetite [Unknown]
  - Dysgeusia [Unknown]
